FAERS Safety Report 20768131 (Version 1)
Quarter: 2022Q2

REPORT INFORMATION
  Report Type: Spontaneous
  Country: US (occurrence: US)
  Receive Date: 20220429
  Receipt Date: 20220429
  Transmission Date: 20220721
  Serious: No
  Sender: FDA-Public Use
  Company Number: US-MAYNE PHARMA-2022MYN000018

PATIENT
  Sex: Male

DRUGS (2)
  1. FLUOROURACIL [Suspect]
     Active Substance: FLUOROURACIL
     Indication: Skin lesion
     Dosage: UNK, Q12H
     Route: 061
     Dates: start: 20220101
  2. FLUOROURACIL [Suspect]
     Active Substance: FLUOROURACIL
     Indication: Skin injury

REACTIONS (3)
  - Application site pruritus [Unknown]
  - Insomnia [Unknown]
  - Expired product administered [Unknown]
